FAERS Safety Report 18101787 (Version 2)
Quarter: 2022Q4

REPORT INFORMATION
  Report Type: Other
  Country: US (occurrence: None)
  Receive Date: 20200802
  Receipt Date: 20221227
  Transmission Date: 20230113
  Serious: Yes (Other)
  Sender: FDA-Public Use
  Company Number: US-ROCHE-2651360

PATIENT
  Age: 72 Year
  Sex: Female

DRUGS (1)
  1. OCREVUS [Suspect]
     Active Substance: OCRELIZUMAB
     Indication: Relapsing multiple sclerosis
     Dosage: ON DAY 1 AND DAY 15, DATE OF TREATMENT:10/FEB/2020,31/AUG/2020,04/MAY/2021,24/NOV/2021,25/MAY/2022,2
     Route: 065
     Dates: start: 20200127

REACTIONS (1)
  - Urinary tract infection [Not Recovered/Not Resolved]
